FAERS Safety Report 9289987 (Version 1)
Quarter: 2013Q2

REPORT INFORMATION
  Report Type: Spontaneous
  Country: DE (occurrence: None)
  Receive Date: 20130510
  Receipt Date: 20130510
  Transmission Date: 20140414
  Serious: Yes (Hospitalization)
  Sender: FDA-Public Use
  Company Number: SYM-2013-03655

PATIENT
  Age: 56 Year
  Sex: Male

DRUGS (8)
  1. FLUOROURACIL [Suspect]
     Indication: COLORECTAL CANCER METASTATIC
     Route: 040
     Dates: start: 20130211, end: 20130211
  2. AFLIBERCEPT [Suspect]
     Indication: COLORECTAL CANCER METASTATIC
     Route: 042
     Dates: start: 20130211, end: 20130211
  3. IRINOTECAN [Suspect]
     Route: 042
     Dates: start: 20130325, end: 20130325
  4. LEUCOVORIN [Suspect]
     Route: 042
     Dates: start: 20130325, end: 20130325
  5. SEROTONIN ANTAGONISTS [Concomitant]
  6. CORTICOSTEROIDS [Concomitant]
  7. CALCIUM CHANNEL BLOCKERS [Concomitant]
  8. VIT K ANTAGONISTS [Concomitant]

REACTIONS (1)
  - Diarrhoea [None]
